FAERS Safety Report 12455700 (Version 1)
Quarter: 2016Q2

REPORT INFORMATION
  Report Type: Spontaneous
  Country: US (occurrence: US)
  Receive Date: 20160610
  Receipt Date: 20160610
  Transmission Date: 20160815
  Serious: Yes (Other)
  Sender: FDA-Public Use
  Company Number: US-CIPLA LTD.-2016US06391

PATIENT

DRUGS (5)
  1. EFAVIRENZ [Interacting]
     Active Substance: EFAVIRENZ
     Indication: HIV INFECTION
     Dosage: 600 MG, QD
     Route: 065
  2. ATAZANAVIR [Suspect]
     Active Substance: ATAZANAVIR
     Indication: HIV INFECTION
     Dosage: 300 MG, QD
     Route: 065
  3. ATOVAQUONE. [Interacting]
     Active Substance: ATOVAQUONE
     Dosage: 1500 MG, BID, WITH FOOD
     Route: 048
  4. RITONAVIR. [Suspect]
     Active Substance: RITONAVIR
     Indication: HIV INFECTION
     Dosage: 100 MG, QD
     Route: 065
  5. ATOVAQUONE. [Interacting]
     Active Substance: ATOVAQUONE
     Dosage: 750 MG, BID, WITH FOOD
     Route: 048

REACTIONS (2)
  - Drug interaction [Unknown]
  - Adverse event [Unknown]
